FAERS Safety Report 15406555 (Version 4)
Quarter: 2018Q4

REPORT INFORMATION
  Report Type: Spontaneous
  Country: GB (occurrence: GB)
  Receive Date: 20180920
  Receipt Date: 20181005
  Transmission Date: 20190204
  Serious: Yes (Hospitalization)
  Sender: FDA-Public Use
  Company Number: GB-ASTRAZENECA-2017SE00016

PATIENT
  Age: 77 Year
  Sex: Female

DRUGS (30)
  1. GAVISCON ADVANCE [Concomitant]
     Active Substance: POTASSIUM BICARBONATE\SODIUM ALGINATE
     Indication: DYSPEPSIA
     Dosage: 10 ML, EVERY 4 TO 6 HOURS TO TAKE AFTER MEALS AND AT BEDTIME
     Route: 048
  2. OMEPRAZOLE. [Concomitant]
     Active Substance: OMEPRAZOLE
     Indication: WHEEZING
     Route: 048
  3. ALBUTEROL. [Concomitant]
     Active Substance: ALBUTEROL
     Indication: WHEEZING
     Dosage: 200.0UG/INHAL UNKNOWN
     Route: 055
  4. FLUVASTATIN SODIUM. [Concomitant]
     Active Substance: FLUVASTATIN SODIUM
     Route: 048
  5. TICAGRELOR. [Suspect]
     Active Substance: TICAGRELOR
     Dosage: 90.0MG UNKNOWN
     Route: 048
     Dates: start: 20160214, end: 20160214
  6. ASPIRIN. [Suspect]
     Active Substance: ASPIRIN
     Route: 048
  7. INDAPAMIDE. [Concomitant]
     Active Substance: INDAPAMIDE
     Route: 048
  8. BECLOMETASONE DIPROPIONATE [Concomitant]
     Active Substance: BECLOMETHASONE DIPROPIONATE
  9. FONDAPARINUX SODIUM. [Suspect]
     Active Substance: FONDAPARINUX SODIUM
     Dosage: 90.0MG UNKNOWN
     Route: 058
     Dates: start: 20160214, end: 20160214
  10. FOSTAIR [Concomitant]
     Active Substance: BECLOMETHASONE\FORMOTEROL
     Route: 055
  11. PANADEINE [Concomitant]
     Active Substance: ACETAMINOPHEN\CODEINE PHOSPHATE
     Indication: PAIN
     Dosage: 2.0DF UNKNOWN
     Route: 048
  12. COCODAMOL [Concomitant]
     Active Substance: ACETAMINOPHEN\CODEINE PHOSPHATE
     Indication: PAIN
     Dosage: 8/500, 2 DF, FOUR TIMES A DAY
     Route: 048
  13. OMEPRAZOLE. [Concomitant]
     Active Substance: OMEPRAZOLE
     Indication: WHEEZING
     Route: 048
  14. OMEPRAZOLE. [Concomitant]
     Active Substance: OMEPRAZOLE
     Indication: WHEEZING
     Route: 048
  15. BACLOFEN. [Concomitant]
     Active Substance: BACLOFEN
     Route: 048
  16. QUININE SULPHATE [Concomitant]
     Active Substance: QUININE SULFATE
     Route: 048
  17. SYNALAR [Concomitant]
     Active Substance: FLUOCINOLONE ACETONIDE
  18. OMEPRAZOLE. [Concomitant]
     Active Substance: OMEPRAZOLE
     Indication: WHEEZING
     Dosage: 200 MICROGRAMS PER INHALATION, UNK
     Route: 055
  19. PREDNISOLONE. [Concomitant]
     Active Substance: PREDNISOLONE
     Route: 048
     Dates: end: 20160220
  20. FORMOTEROL FUMARATE DIHYDRATE [Concomitant]
     Active Substance: FORMOTEROL FUMARATE DIHYDRATE
     Dosage: 2.0DF UNKNOWN
     Route: 055
  21. DIPROBASE [Suspect]
     Active Substance: CHLOROCRESOL
     Indication: PSORIASIS
     Route: 065
  22. MINERAL OIL EMULSION [Suspect]
     Active Substance: MINERAL OIL EMULSION
     Indication: PSORIASIS
     Dosage: MINERAL OIL (+) PETROLATUM, WHITE
     Dates: start: 2004
  23. OMEPRAZOLE. [Concomitant]
     Active Substance: OMEPRAZOLE
     Indication: WHEEZING
     Route: 048
  24. OMEPRAZOLE. [Concomitant]
     Active Substance: OMEPRAZOLE
     Indication: WHEEZING
     Route: 048
  25. AMLODIPINE [Concomitant]
     Active Substance: AMLODIPINE BESYLATE
     Route: 048
  26. FONDAPARINUX SODIUM. [Suspect]
     Active Substance: FONDAPARINUX SODIUM
     Dosage: 2.5MG UNKNOWN
     Route: 058
     Dates: start: 20160214, end: 20160214
  27. OMEPRAZOLE. [Concomitant]
     Active Substance: OMEPRAZOLE
     Indication: WHEEZING
     Route: 048
  28. POTASSIUM BICARBONATE/SODIUM ALGINATE [Concomitant]
     Indication: DYSPEPSIA
     Dosage: 10 ML, EVERY 4 TO 6 HOURS TO TAKE AFTER MEALS AND AT BEDTIME
     Route: 048
  29. SALBUTAMOL [Concomitant]
     Active Substance: ALBUTEROL
     Indication: WHEEZING
     Dosage: 200.0UG UNKNOWN
     Route: 055
  30. PETROLATUM, WHITE [Suspect]
     Active Substance: PETROLATUM
     Indication: PSORIASIS
     Dosage: MINERAL OIL (+) PETROLATUM, WHITE
     Dates: start: 2004

REACTIONS (4)
  - Labelled drug-drug interaction medication error [Unknown]
  - Off label use [Unknown]
  - Catheter site haemorrhage [Recovering/Resolving]
  - Product use in unapproved indication [Unknown]

NARRATIVE: CASE EVENT DATE: 2004
